FAERS Safety Report 7582189-9 (Version None)
Quarter: 2011Q2

REPORT INFORMATION
  Report Type: 
  Country: None (occurrence: None)
  Receive Date: 20110630
  Receipt Date: 20110621
  Transmission Date: 20111010
  Serious: Yes (Hospitalization)
  Sender: FDA-Public Use
  Company Number: JP-AMGEN-JPNCT2011032994

PATIENT
  Age: 55 Year
  Sex: Male

DRUGS (9)
  1. FLUOROURACIL [Concomitant]
     Indication: LARGE INTESTINE CARCINOMA
     Route: 040
     Dates: start: 20110524
  2. PYRINAZIN [Concomitant]
     Route: 048
  3. OXYCONTIN [Concomitant]
     Route: 048
  4. AMITRIPTYLINE HCL [Concomitant]
     Route: 048
  5. PANITUMUMAB [Suspect]
     Indication: LARGE INTESTINE CARCINOMA
     Dosage: 180 MG, Q2WK
     Route: 041
     Dates: start: 20110524, end: 20110524
  6. LEUCOVORIN CALCIUM [Concomitant]
     Indication: LARGE INTESTINE CARCINOMA
     Route: 041
     Dates: start: 20110524
  7. ETODOLAC [Concomitant]
     Route: 048
  8. PANITUMUMAB [Suspect]
     Dosage: 360 MG, Q2WK
     Route: 041
     Dates: start: 20110620, end: 20110620
  9. IRINOTECAN HCL [Concomitant]
     Indication: LARGE INTESTINE CARCINOMA
     Route: 041
     Dates: start: 20110524

REACTIONS (3)
  - NEURALGIA [None]
  - BONE PAIN [None]
  - HEADACHE [None]
